FAERS Safety Report 8177110-9 (Version None)
Quarter: 2012Q1

REPORT INFORMATION
  Report Type: 
  Country: None (occurrence: None)
  Receive Date: 20120301
  Receipt Date: 20120227
  Transmission Date: 20120608
  Serious: Yes (Hospitalization)
  Sender: FDA-Public Use
  Company Number: US-GLAXOSMITHKLINE-A0967663A

PATIENT
  Age: 63 Year
  Sex: Female

DRUGS (11)
  1. SINGULAIR [Concomitant]
  2. LISINOPRIL [Concomitant]
  3. SIMVASTATIN [Concomitant]
  4. POTASSIUM CHLORIDE [Concomitant]
  5. COREG [Concomitant]
  6. ADVAIR DISKUS 100/50 [Suspect]
     Indication: CHRONIC OBSTRUCTIVE PULMONARY DISEASE
     Dosage: 1PUFF TWICE PER DAY
     Route: 055
     Dates: start: 20070101
  7. GLUCOPHAGE [Concomitant]
  8. ASPIRIN [Concomitant]
  9. LASIX [Concomitant]
  10. PROBIOTICS [Concomitant]
  11. VITAMIN [Concomitant]

REACTIONS (2)
  - CHEST PAIN [None]
  - PULMONARY CONGESTION [None]
